FAERS Safety Report 11976562 (Version 2)
Quarter: 2016Q1

REPORT INFORMATION
  Report Type: Spontaneous
  Country: GB (occurrence: GB)
  Receive Date: 20160129
  Receipt Date: 20160203
  Transmission Date: 20160526
  Serious: Yes (Hospitalization)
  Sender: FDA-Public Use
  Company Number: PHHY2016GB010269

PATIENT
  Age: 54 Year
  Sex: Female

DRUGS (3)
  1. CICLOSPORIN [Suspect]
     Active Substance: CYCLOSPORINE
     Indication: RASH ERYTHEMATOUS
     Route: 065
  2. CICLOSPORIN [Suspect]
     Active Substance: CYCLOSPORINE
     Indication: RASH PRURITIC
  3. CICLOSPORIN [Suspect]
     Active Substance: CYCLOSPORINE
     Indication: RASH MACULAR

REACTIONS (9)
  - Muscular weakness [Unknown]
  - Mobility decreased [Unknown]
  - Lethargy [Unknown]
  - Toxicity to various agents [Unknown]
  - Disturbance in attention [Unknown]
  - Rash [Unknown]
  - Product use issue [Unknown]
  - Fall [Unknown]
  - Memory impairment [Unknown]
